FAERS Safety Report 13772449 (Version 1)
Quarter: 2017Q3

REPORT INFORMATION
  Report Type: Spontaneous
  Country: US (occurrence: US)
  Receive Date: 20170720
  Receipt Date: 20170720
  Transmission Date: 20171127
  Serious: No
  Sender: FDA-Public Use
  Company Number: GXBR2017US001365

PATIENT
  Sex: Male

DRUGS (1)
  1. ENOXAPARIN SODIUM. [Suspect]
     Active Substance: ENOXAPARIN SODIUM
     Indication: PLASMA CELL MYELOMA
     Dosage: 40 MG, Q12H
     Route: 065
     Dates: start: 20170323, end: 20170406

REACTIONS (1)
  - Injection site bruising [Not Recovered/Not Resolved]
